FAERS Safety Report 6280253-8 (Version None)
Quarter: 2009Q3

REPORT INFORMATION
  Report Type: 
  Country: None (occurrence: None)
  Receive Date: 20090723
  Receipt Date: 20090715
  Transmission Date: 20100115
  Serious: Yes (Hospitalization)
  Sender: FDA-Public Use
  Company Number: AU-AMGEN-US356369

PATIENT
  Age: 62 Year
  Sex: Female

DRUGS (2)
  1. ENBREL [Suspect]
     Indication: RHEUMATOID ARTHRITIS
     Dosage: UNKNOWN
     Route: 058
     Dates: end: 20090708
  2. METHOTREXATE [Concomitant]
     Route: 065

REACTIONS (15)
  - ABDOMINAL PAIN UPPER [None]
  - ANAEMIA [None]
  - C-REACTIVE PROTEIN INCREASED [None]
  - CHILLS [None]
  - COGNITIVE DISORDER [None]
  - DIARRHOEA [None]
  - EATING DISORDER [None]
  - HALLUCINATION, VISUAL [None]
  - LETHARGY [None]
  - LIVER FUNCTION TEST ABNORMAL [None]
  - NEUTROPHIL COUNT INCREASED [None]
  - PYREXIA [None]
  - RENAL FAILURE [None]
  - VOMITING [None]
  - WHITE BLOOD CELL COUNT INCREASED [None]
